FAERS Safety Report 11246434 (Version 1)
Quarter: 2015Q3

REPORT INFORMATION
  Report Type: Spontaneous
  Country: US (occurrence: US)
  Receive Date: 20150708
  Receipt Date: 20150708
  Transmission Date: 20151125
  Serious: Yes (Hospitalization)
  Sender: FDA-Public Use
  Company Number: US-SUN PHARMACEUTICAL INDUSTRIES LTD-2015SUN01523

PATIENT

DRUGS (1)
  1. SULINDAC TABLETS, USP 150 MG [Suspect]
     Active Substance: SULINDAC
     Indication: PRODUCT USED FOR UNKNOWN INDICATION
     Dosage: INGESTED 100 TABLETS THAT CONTAINED 150 MG OF SULINDAC EACH
     Route: 048

REACTIONS (5)
  - Hyperbilirubinaemia [Recovered/Resolved]
  - Dry gangrene [Recovering/Resolving]
  - Intentional overdose [Recovering/Resolving]
  - Suicide attempt [Unknown]
  - Acute kidney injury [Recovering/Resolving]
